FAERS Safety Report 4447947-8 (Version None)
Quarter: 2004Q3

REPORT INFORMATION
  Report Type: 
  Country: None (occurrence: None)
  Receive Date: 20040913
  Receipt Date: 20040908
  Transmission Date: 20050211
  Serious: Yes (Other)
  Sender: FDA-Public Use
  Company Number: BR-ROCHE-380034

PATIENT
  Age: 20 Year
  Sex: Female
  Weight: 58 kg

DRUGS (3)
  1. ROACUTAN [Suspect]
     Indication: ACNE
     Route: 048
     Dates: start: 20040615, end: 20040815
  2. 1 UNSPECIFIED DRUG [Concomitant]
     Indication: DEPRESSION
     Route: 048
  3. MICROVLAR [Concomitant]
     Indication: CONTRACEPTION
     Route: 048

REACTIONS (3)
  - AGGRESSION [None]
  - DEPRESSION [None]
  - SUICIDAL IDEATION [None]
